FAERS Safety Report 12429996 (Version 1)
Quarter: 2016Q2

REPORT INFORMATION
  Report Type: Spontaneous
  Country: US (occurrence: US)
  Receive Date: 20160602
  Receipt Date: 20160602
  Transmission Date: 20160815
  Serious: No
  Sender: FDA-Public Use
  Company Number: US-KADMON PHARMACEUTICALS, LLC-KAD201510-003768

PATIENT
  Age: 61 Year
  Sex: Male

DRUGS (5)
  1. RIBAVIRIN 200 MG [Suspect]
     Active Substance: RIBAVIRIN
     Indication: HEPATITIS C
     Route: 048
     Dates: start: 201509, end: 20151014
  2. RIBAVIRIN 200 MG [Suspect]
     Active Substance: RIBAVIRIN
     Route: 048
     Dates: start: 20151014
  3. VIEKIRA PAK [Suspect]
     Active Substance: DASABUVIR\OMBITASVIR\PARITAPREVIR\RITONAVIR
     Indication: HEPATITIS C
     Dosage: TABLET
     Route: 048
     Dates: start: 20150930
  4. PANCREATIC ENZYMES [Concomitant]
     Active Substance: UNSPECIFIED INGREDIENT
     Indication: PANCREATITIS
  5. PANTOPRAZOLE [Concomitant]
     Active Substance: PANTOPRAZOLE SODIUM
     Indication: DYSPEPSIA

REACTIONS (6)
  - Throat irritation [Unknown]
  - Dyspepsia [Unknown]
  - Fatigue [Unknown]
  - Blood iron decreased [Unknown]
  - Chest pain [Unknown]
  - Anaemia [Unknown]

NARRATIVE: CASE EVENT DATE: 201510
